FAERS Safety Report 24111913 (Version 1)
Quarter: 2024Q3

REPORT INFORMATION
  Report Type: Report from Study
  Country: ZA (occurrence: ZA)
  Receive Date: 20240718
  Receipt Date: 20240718
  Transmission Date: 20241017
  Serious: Yes (Hospitalization)
  Sender: ABBVIE
  Company Number: ZA-ABBVIE-5842687

PATIENT
  Age: 49 Year
  Sex: Female

DRUGS (1)
  1. BOTOX [Suspect]
     Active Substance: ONABOTULINUMTOXINA
     Indication: Torticollis
     Dosage: TIME INTERVAL: AS NECESSARY: 600; FORM STRENGTH: 200 IU (INTERNATIONAL UNIT)
     Route: 065
     Dates: start: 20240215, end: 20240215

REACTIONS (1)
  - Medical device implantation [Unknown]

NARRATIVE: CASE EVENT DATE: 20240101
